FAERS Safety Report 8187348 (Version 2)
Quarter: 2013Q3

REPORT INFORMATION
  Report Type: Report from Study
  Country: IL (occurrence: IL)
  Receive Date: 20111018
  Receipt Date: 20130716
  Transmission Date: 20140515
  Serious: Yes (Hospitalization, Other)
  Sender: FDA-Public Use
  Company Number: PHHY2011IL89720

PATIENT
  Age: 89 Year
  Sex: Female

DRUGS (1)
  1. SANDOSTATIN LAR [Suspect]
     Indication: CARCINOID TUMOUR
     Dosage: 30 MG Q4W
     Dates: start: 20070805

REACTIONS (9)
  - Local swelling [Recovering/Resolving]
  - Palpitations [Unknown]
  - Chest pain [Unknown]
  - Dizziness [Unknown]
  - Dyspnoea [Recovering/Resolving]
  - Pulmonary oedema [Recovering/Resolving]
  - Abdominal pain [Recovering/Resolving]
  - Emphysema [Unknown]
  - Pulmonary congestion [Unknown]
